FAERS Safety Report 10757498 (Version 1)
Quarter: 2015Q1

REPORT INFORMATION
  Report Type: Spontaneous
  Country: US (occurrence: None)
  Receive Date: 20150202
  Receipt Date: 20150202
  Transmission Date: 20150721
  Serious: Yes (Hospitalization)
  Sender: FDA-Public Use
  Company Number: None

PATIENT

DRUGS (1)
  1. PHENYTOIN SODIUM EXTENDED [Suspect]
     Active Substance: PHENYTOIN SODIUM

REACTIONS (7)
  - Fall [None]
  - Tremor [None]
  - Product quality issue [None]
  - Dysarthria [None]
  - Product substitution issue [None]
  - Gait disturbance [None]
  - Anticonvulsant drug level increased [None]
